FAERS Safety Report 19240030 (Version 1)
Quarter: 2021Q2

REPORT INFORMATION
  Report Type: Spontaneous
  Country: PL (occurrence: PL)
  Receive Date: 20210510
  Receipt Date: 20210510
  Transmission Date: 20210717
  Serious: Yes (Other)
  Sender: FDA-Public Use
  Company Number: PL-PFIZER INC-2021472699

PATIENT
  Age: 65 Year
  Sex: Male
  Weight: 84 kg

DRUGS (2)
  1. SUTENT [Suspect]
     Active Substance: SUNITINIB MALATE
     Dosage: 37.5 MG, CYCLIC (COURSE 2?6)
     Route: 048
  2. SUTENT [Suspect]
     Active Substance: SUNITINIB MALATE
     Dosage: 50 MG, CYCLIC (COURSE 1)
     Route: 048

REACTIONS (13)
  - Alanine aminotransferase increased [Unknown]
  - Blood pressure increased [Unknown]
  - Aspartate aminotransferase increased [Unknown]
  - Blood thyroid stimulating hormone increased [Unknown]
  - Tongue disorder [Unknown]
  - Palmar-plantar erythrodysaesthesia syndrome [Unknown]
  - Chronic kidney disease [Unknown]
  - Thrombocytopenia [Unknown]
  - Leukopenia [Unknown]
  - Hyperthyroidism [Unknown]
  - Constipation [Unknown]
  - Anaemia [Unknown]
  - Tooth disorder [Unknown]
